FAERS Safety Report 4850509-1 (Version None)
Quarter: 2005Q4

REPORT INFORMATION
  Report Type: 
  Country: None (occurrence: None)
  Receive Date: 20051208
  Receipt Date: 20051129
  Transmission Date: 20060501
  Serious: Yes (Disabling)
  Sender: FDA-Public Use
  Company Number: 2005162833

PATIENT
  Age: 65 Year
  Sex: Female

DRUGS (1)
  1. BEXTRA [Suspect]
     Indication: ARTHRALGIA
     Dosage: 40 MG (40 MG, 1 IN 1D), ORAL
     Route: 048
     Dates: start: 20050101

REACTIONS (4)
  - ABASIA [None]
  - GENERALISED OEDEMA [None]
  - MASS [None]
  - SELF-MEDICATION [None]
